FAERS Safety Report 22228537 (Version 1)
Quarter: 2023Q2

REPORT INFORMATION
  Report Type: Report from Study
  Country: CA (occurrence: CA)
  Receive Date: 20230419
  Receipt Date: 20230419
  Transmission Date: 20230722
  Serious: Yes (Other)
  Sender: FDA-Public Use
  Company Number: CA-GILEAD-2023-0618177

PATIENT
  Sex: Female

DRUGS (4)
  1. SACITUZUMAB GOVITECAN-HZIY [Suspect]
     Active Substance: SACITUZUMAB GOVITECAN-HZIY
     Indication: Triple negative breast cancer
     Dosage: 785 MG
     Route: 042
     Dates: start: 20221223, end: 20230215
  2. SACITUZUMAB GOVITECAN-HZIY [Suspect]
     Active Substance: SACITUZUMAB GOVITECAN-HZIY
     Dosage: DAYS 1 AND 8 OF THIS CYCLE
     Route: 042
     Dates: start: 20230309, end: 20230323
  3. SACITUZUMAB GOVITECAN-HZIY [Suspect]
     Active Substance: SACITUZUMAB GOVITECAN-HZIY
     Dosage: UNK
     Route: 042
     Dates: end: 20230323
  4. PACLITAXEL [Concomitant]
     Active Substance: PACLITAXEL

REACTIONS (5)
  - Disease progression [Unknown]
  - Platelet count decreased [Unknown]
  - Neutrophil count decreased [Unknown]
  - Neutrophil count decreased [Unknown]
  - Weight fluctuation [Not Recovered/Not Resolved]
